FAERS Safety Report 6439170-2 (Version None)
Quarter: 2009Q4

REPORT INFORMATION
  Report Type: 
  Country: None (occurrence: None)
  Receive Date: 20091113
  Receipt Date: 20091110
  Transmission Date: 20100525
  Serious: Yes (Other)
  Sender: FDA-Public Use
  Company Number: US-GILEAD-2009-0025176

PATIENT
  Sex: Male

DRUGS (6)
  1. LETAIRIS [Suspect]
     Indication: PULMONARY ARTERIAL HYPERTENSION
     Route: 048
     Dates: start: 20090101
  2. LETAIRIS [Suspect]
     Route: 048
     Dates: start: 20080829
  3. REVATIO [Concomitant]
  4. NORVASC [Concomitant]
  5. COREG [Concomitant]
  6. HYDRALAZINE HCL [Concomitant]

REACTIONS (3)
  - CATARACT [None]
  - EYE HAEMORRHAGE [None]
  - VISUAL IMPAIRMENT [None]
